FAERS Safety Report 19499204 (Version 1)
Quarter: 2021Q3

REPORT INFORMATION
  Report Type: Spontaneous
  Country: DE (occurrence: DE)
  Receive Date: 20210706
  Receipt Date: 20210706
  Transmission Date: 20211014
  Serious: Yes (Life-Threatening, Hospitalization)
  Sender: FDA-Public Use
  Company Number: DE-BRACCO-2021DE02869

PATIENT
  Age: 78 Year
  Sex: Male

DRUGS (13)
  1. SOLUTRAST 370 [Suspect]
     Active Substance: IOPAMIDOL
     Dosage: 100 MG, 1X AM 20?JAN?2021
     Route: 042
     Dates: start: 20210120, end: 20210120
  2. LYSINE AMIDOTRIZOATE [Suspect]
     Active Substance: LYSINE AMIDOTRIZOATE
     Route: 054
  3. HUMALOG [Concomitant]
     Active Substance: INSULIN LISPRO
     Dosage: ACCORDING TO SCHEME
     Route: 058
  4. METOPROLOL. [Concomitant]
     Active Substance: METOPROLOL
     Dosage: 8 HOURS, 47.5 MG, 1?1?1?0
     Route: 065
  5. PANTOPRAZOLE [Concomitant]
     Active Substance: PANTOPRAZOLE
     Dosage: 40 MG, 0?0?1?0
     Route: 065
  6. TOUJEO [Concomitant]
     Active Substance: INSULIN GLARGINE
     Dosage: 20 IU, 0?0?1?0
     Route: 058
  7. AMLODIPINE [Concomitant]
     Active Substance: AMLODIPINE BESYLATE
     Dosage: 5 MG, 1?0?0?0
     Route: 065
  8. KREON 25000 [Concomitant]
     Active Substance: PANCRELIPASE
     Dosage: 25000 IU, 1?1?1?0
     Route: 065
  9. INNOHEP [Concomitant]
     Active Substance: TINZAPARIN SODIUM
     Dosage: 1 DF(GTT), 14000 IU, 1?0?0?0
     Route: 058
  10. TORASEMID [Concomitant]
     Active Substance: TORSEMIDE
     Dosage: 5 MG, 1?0?0?0
     Route: 065
  11. LYSINE AMIDOTRIZOATE [Suspect]
     Active Substance: LYSINE AMIDOTRIZOATE
     Dosage: UNK
     Route: 048
  12. METAMIZOLE [Concomitant]
     Active Substance: METAMIZOLE
     Dosage: 6 HOURS, 500 MG, 1?1?1?1
     Route: 065
  13. RAMIPRIL. [Concomitant]
     Active Substance: RAMIPRIL
     Dosage: 5 MG, 0?0?1?0
     Route: 065

REACTIONS (8)
  - Product administration error [Recovered/Resolved]
  - Nausea [Recovered/Resolved]
  - Presyncope [Recovered/Resolved]
  - Dyspnoea [Recovered/Resolved]
  - Hypotension [Recovered/Resolved]
  - Contraindicated product administered [Recovered/Resolved]
  - Cold sweat [Recovered/Resolved]
  - Oxygen saturation decreased [Recovered/Resolved]

NARRATIVE: CASE EVENT DATE: 20210120
